FAERS Safety Report 9086456 (Version 1)
Quarter: 2013Q1

REPORT INFORMATION
  Report Type: Report from Study
  Country: US (occurrence: US)
  Receive Date: 20130130
  Receipt Date: 20130130
  Transmission Date: 20140127
  Serious: No
  Sender: FDA-Public Use
  Company Number: US-ABBOTT-12P-163-0985592-00

PATIENT
  Age: 41 Year
  Sex: Female

DRUGS (4)
  1. HUMIRA [Suspect]
     Indication: ANKYLOSING SPONDYLITIS
     Dates: start: 201205
  2. MELOXICAM [Concomitant]
     Indication: ANKYLOSING SPONDYLITIS
     Dosage: DAILY
     Route: 048
  3. WELLBUTRIN [Concomitant]
     Indication: ANXIETY
     Dosage: 300MG DAILY
     Route: 048
  4. WELLBUTRIN [Concomitant]
     Indication: SEASONAL AFFECTIVE DISORDER

REACTIONS (1)
  - Alopecia [Not Recovered/Not Resolved]
